FAERS Safety Report 7319227-4 (Version None)
Quarter: 2011Q1

REPORT INFORMATION
  Report Type: 
  Country: None (occurrence: None)
  Receive Date: 20110228
  Receipt Date: 20110223
  Transmission Date: 20110831
  Serious: Yes (Hospitalization)
  Sender: FDA-Public Use
  Company Number: ES-PFIZER INC-2011040074

PATIENT
  Age: 47 Year
  Sex: Male

DRUGS (1)
  1. VIBRACINA [Suspect]
     Indication: MYCOPLASMA INFECTION
     Dosage: 100 MG, 2X/DAY
     Route: 048
     Dates: start: 20101014, end: 20101024

REACTIONS (1)
  - LEUKOCYTOCLASTIC VASCULITIS [None]
